FAERS Safety Report 13550017 (Version 1)
Quarter: 2017Q2

REPORT INFORMATION
  Report Type: Spontaneous
  Country: US (occurrence: US)
  Receive Date: 20170516
  Receipt Date: 20170516
  Transmission Date: 20170830
  Serious: No
  Sender: FDA-Public Use
  Company Number: US-GLAXOSMITHKLINE-US2017068988

PATIENT
  Sex: Female

DRUGS (1)
  1. ABREVA [Suspect]
     Active Substance: DOCOSANOL
     Indication: ORAL HERPES
     Dosage: UNK
     Dates: start: 201704, end: 201704

REACTIONS (11)
  - Oral herpes [Recovered/Resolved]
  - Pain [Unknown]
  - Application site laceration [Recovered/Resolved]
  - Oral discomfort [Recovered/Resolved]
  - Lip discolouration [Recovered/Resolved]
  - Scar [Not Recovered/Not Resolved]
  - Condition aggravated [Recovered/Resolved]
  - Cheilitis [Recovered/Resolved]
  - Sleep disorder [Recovered/Resolved]
  - Scab [Recovered/Resolved]
  - Lip swelling [Recovered/Resolved]
